FAERS Safety Report 21252336 (Version 3)
Quarter: 2022Q4

REPORT INFORMATION
  Report Type: Spontaneous
  Country: US (occurrence: US)
  Receive Date: 20220825
  Receipt Date: 20221014
  Transmission Date: 20230113
  Serious: Yes (Other)
  Sender: FDA-Public Use
  Company Number: US-PFIZER INC-202201086849

PATIENT
  Age: 9 Year
  Sex: Male
  Weight: 35.38 kg

DRUGS (12)
  1. GENOTROPIN [Suspect]
     Active Substance: SOMATROPIN
     Indication: Growth hormone deficiency
     Dosage: 1.3 MG, DAILY (EVERY NIGHT; AVERAGES TO 1.3MG; ALTERNATES 1 NIGHT 1.2MG AND ONE NIGHT 1.4MG)
     Dates: start: 2019
  2. GENOTROPIN [Suspect]
     Active Substance: SOMATROPIN
     Dosage: 1.3 MG, DAILY (EVERY NIGHT; AVERAGES TO 1.3MG; ALTERNATES 1 NIGHT 1.2MG AND ONE NIGHT 1.4MG)
  3. LORATADINE [Concomitant]
     Active Substance: LORATADINE
     Indication: Seasonal allergy
     Dosage: 10 MG IN THE MORNING, BEEN TAKING SINCE HE WAS 5, ALMOST 5 YEARS NOW
     Dates: start: 2017
  4. LANSOPRAZOLE [Concomitant]
     Active Substance: LANSOPRAZOLE
     Indication: Gastrooesophageal reflux disease
     Dosage: 15 MG IN THE MORNING, HAS BEEN TAKING FOR 8 YEARS
     Dates: start: 2013
  5. IPRATROPIUM BROMIDE [Concomitant]
     Active Substance: IPRATROPIUM BROMIDE
     Indication: Hypersensitivity
     Dosage: NOSE SPRAY, 0.06%, 42MCG PER SPRAY, HAS TAKEN FOR ABOUT 2 YEARS
     Route: 045
     Dates: start: 2020
  6. IPRATROPIUM BROMIDE [Concomitant]
     Active Substance: IPRATROPIUM BROMIDE
     Indication: Sinusitis
  7. TRIAMCINOLONE ACETONIDE [Concomitant]
     Active Substance: TRIAMCINOLONE ACETONIDE
     Indication: Rhinitis allergic
     Dosage: 55MCG PER SPRAY, TWICE A DAY, BEEN TAKING FOR 5 YEARS
     Dates: start: 2017
  8. BUDESONIDE\FORMOTEROL [Concomitant]
     Active Substance: BUDESONIDE\FORMOTEROL
     Indication: Asthma
     Dosage: 80MCG/4.5MCG CONTROLLER INHALER, 2X/DAY
  9. ALBUTEROL SULFATE [Concomitant]
     Active Substance: ALBUTEROL SULFATE
     Indication: Asthma
     Dosage: 90MCG PER SPRAY, AS NEEDED
  10. MONTELUKAST [Concomitant]
     Active Substance: MONTELUKAST SODIUM
     Indication: Hypersensitivity
     Dosage: 5MG TABLET, ONCE A DAY IN EVENING
  11. MONTELUKAST [Concomitant]
     Active Substance: MONTELUKAST SODIUM
     Indication: Asthma
  12. ZYRTEC [Concomitant]
     Active Substance: CETIRIZINE HYDROCHLORIDE
     Indication: Allergy prophylaxis
     Dosage: 10MG DAILY, NIGHTLY WITHIN 2 HOURS OF GENOTROPIN, HAS BEEN ON FOR 8 YEARS
     Dates: start: 2013

REACTIONS (3)
  - Sinusitis [Unknown]
  - Device use issue [Unknown]
  - Drug dose omission by device [Unknown]

NARRATIVE: CASE EVENT DATE: 20220101
